FAERS Safety Report 4970547-8 (Version None)
Quarter: 2006Q2

REPORT INFORMATION
  Report Type: 
  Country: None (occurrence: None)
  Receive Date: 20060406
  Receipt Date: 20060321
  Transmission Date: 20061013
  Serious: Yes (Hospitalization)
  Sender: FDA-Public Use
  Company Number: DSA_27936_2006

PATIENT
  Age: 36 Year
  Sex: Female

DRUGS (3)
  1. TAVOR /00273201/ [Suspect]
     Dosage: 42.5 MG ONCE PO
     Route: 048
  2. GEODON /01487002/ [Suspect]
     Dosage: 43 TAB ONCE PO
     Route: 048
  3. REMERON [Suspect]
     Dosage: 28 TAB ONCE PO
     Route: 048

REACTIONS (5)
  - HYPOTENSION [None]
  - MULTIPLE DRUG OVERDOSE INTENTIONAL [None]
  - RESPIRATORY DEPRESSION [None]
  - SUICIDE ATTEMPT [None]
  - TACHYCARDIA [None]
